FAERS Safety Report 23142784 (Version 1)
Quarter: 2023Q4

REPORT INFORMATION
  Report Type: Spontaneous
  Country: US (occurrence: None)
  Receive Date: 20231102
  Receipt Date: 20231102
  Transmission Date: 20240110
  Serious: Yes (Disabling)
  Sender: FDA-Public Use
  Company Number: None

PATIENT
  Age: 29 Year
  Sex: Female
  Weight: 74.25 kg

DRUGS (6)
  1. ORILISSA [Suspect]
     Active Substance: ELAGOLIX SODIUM
     Indication: Endometriosis
     Dosage: OTHER QUANTITY : 1 TABLET(S);?
     Route: 048
     Dates: start: 20221017
  2. Orilissa 150 mg [Concomitant]
  3. FISH OIL [Concomitant]
     Active Substance: FISH OIL
  4. KYLEENA [Concomitant]
     Active Substance: LEVONORGESTREL
  5. GABA supplements [Concomitant]
  6. PROBIOTICS NOS [Concomitant]
     Active Substance: PROBIOTICS NOS

REACTIONS (16)
  - Depression [None]
  - Mood altered [None]
  - Arthralgia [None]
  - Hot flush [None]
  - Brain fog [None]
  - Suicidal ideation [None]
  - Motion sickness [None]
  - Memory impairment [None]
  - Emotional disorder [None]
  - Tearfulness [None]
  - Irritability [None]
  - Hypokinesia [None]
  - COVID-19 [None]
  - Impaired quality of life [None]
  - Endometriosis [None]
  - Night sweats [None]

NARRATIVE: CASE EVENT DATE: 20221017
